FAERS Safety Report 24999784 (Version 2)
Quarter: 2025Q2

REPORT INFORMATION
  Report Type: Spontaneous
  Country: US (occurrence: US)
  Receive Date: 20250222
  Receipt Date: 20250513
  Transmission Date: 20250717
  Serious: No
  Sender: SANOFI AVENTIS
  Company Number: US-SA-2023SA029919

PATIENT
  Age: 62 Year
  Sex: Female

DRUGS (3)
  1. DUPIXENT [Suspect]
     Active Substance: DUPILUMAB
     Indication: Asthma
     Route: 058
     Dates: start: 2019, end: 2019
  2. DUPIXENT [Suspect]
     Active Substance: DUPILUMAB
     Indication: Eczema
     Dosage: 300 MG, QOW
     Route: 058
  3. DUPIXENT [Suspect]
     Active Substance: DUPILUMAB
     Indication: Nasal polyps
     Dosage: 300 MG, QM
     Route: 058

REACTIONS (10)
  - Rhinorrhoea [Recovered/Resolved]
  - Condition aggravated [Recovered/Resolved]
  - Upper-airway cough syndrome [Recovered/Resolved]
  - Dyspnoea [Recovered/Resolved]
  - Insomnia [Recovered/Resolved]
  - Hypersensitivity [Unknown]
  - Cough [Unknown]
  - Lacrimation increased [Unknown]
  - Eye irritation [Unknown]
  - Inappropriate schedule of product administration [Unknown]

NARRATIVE: CASE EVENT DATE: 20250401
